FAERS Safety Report 11429101 (Version 1)
Quarter: 2015Q3

REPORT INFORMATION
  Report Type: Spontaneous
  Country: US (occurrence: None)
  Receive Date: 20150827
  Receipt Date: 20150827
  Transmission Date: 20151125
  Serious: No
  Sender: FDA-Public Use
  Company Number: None

PATIENT
  Age: 52 Year
  Sex: Female

DRUGS (1)
  1. IBRANCE [Suspect]
     Active Substance: PALBOCICLIB
     Indication: BREAST CANCER
     Dosage: 1 CAPSULE  QD ORAL
     Route: 048
     Dates: start: 20150806, end: 20150826

REACTIONS (2)
  - Sinus disorder [None]
  - Haemoglobin decreased [None]

NARRATIVE: CASE EVENT DATE: 20150820
